FAERS Safety Report 6710398-7 (Version None)
Quarter: 2010Q2

REPORT INFORMATION
  Report Type: 
  Country: None (occurrence: None)
  Receive Date: 20100504
  Receipt Date: 20100415
  Transmission Date: 20101027
  Serious: Yes (Hospitalization)
  Sender: FDA-Public Use
  Company Number: FR-ELI_LILLY_AND_COMPANY-FR201004006292

PATIENT
  Sex: Female

DRUGS (1)
  1. OPTRUMA [Suspect]
     Dosage: 60 MG, DAILY (1/D)
     Route: 048
     Dates: start: 20100401, end: 20100101

REACTIONS (1)
  - MYOCARDIAL INFARCTION [None]
